FAERS Safety Report 23838897 (Version 1)
Quarter: 2024Q2

REPORT INFORMATION
  Report Type: Report from Study
  Country: DE (occurrence: DE)
  Receive Date: 20240509
  Receipt Date: 20240509
  Transmission Date: 20240715
  Serious: Yes (Hospitalization, Other)
  Sender: FDA-Public Use
  Company Number: DE-KYOWAKIRIN-2024KK006194

PATIENT

DRUGS (28)
  1. MOGAMULIZUMAB [Suspect]
     Active Substance: MOGAMULIZUMAB
     Indication: Cutaneous T-cell lymphoma stage IV
     Dosage: 100 MG (1MG/KG CYCLE 1 DAY 1)
     Route: 065
     Dates: start: 20230926
  2. MOGAMULIZUMAB [Suspect]
     Active Substance: MOGAMULIZUMAB
     Dosage: 0MG/KG CYCLE 1 DAY 8, THERAPY INTERRUPTED
     Route: 065
     Dates: start: 20231003
  3. MOGAMULIZUMAB [Suspect]
     Active Substance: MOGAMULIZUMAB
     Dosage: 100 MG (1MG/KG CYCLE 1 DAY 15)
     Route: 065
     Dates: start: 20231010
  4. MOGAMULIZUMAB [Suspect]
     Active Substance: MOGAMULIZUMAB
     Dosage: 100 MG (1MG/KG CYCLE 1 DAY 22)
     Route: 065
     Dates: start: 20231020
  5. MOGAMULIZUMAB [Suspect]
     Active Substance: MOGAMULIZUMAB
     Dosage: 100 MG (1MG/KG CYCLE 2 DAY 1)
     Route: 065
     Dates: start: 20231026
  6. MOGAMULIZUMAB [Suspect]
     Active Substance: MOGAMULIZUMAB
     Dosage: 100 MG (1MG/KG CYCLE 2 DAY 15)
     Route: 065
     Dates: start: 20231106
  7. MOGAMULIZUMAB [Suspect]
     Active Substance: MOGAMULIZUMAB
     Dosage: 0MG/KG CYCLE 3 DAY 1, THERAPY INTERRUPTED
     Route: 065
     Dates: start: 20231120
  8. MOGAMULIZUMAB [Suspect]
     Active Substance: MOGAMULIZUMAB
     Dosage: 100 MG (1MG/KG CYCLE 3 DAY 15)
     Route: 065
     Dates: start: 20231207
  9. MOGAMULIZUMAB [Suspect]
     Active Substance: MOGAMULIZUMAB
     Dosage: 100 MG (1MG/KG CYCLE 4 DAY 1)
     Route: 065
     Dates: start: 20231221
  10. MOGAMULIZUMAB [Suspect]
     Active Substance: MOGAMULIZUMAB
     Dosage: 100 MG (1MG/KG CYCLE 4 DAY 15)
     Route: 065
     Dates: start: 20240104
  11. MOGAMULIZUMAB [Suspect]
     Active Substance: MOGAMULIZUMAB
     Dosage: 100 MG (1MG/KG CYCLE 5 DAY 1)
     Route: 065
     Dates: start: 20240118
  12. MOGAMULIZUMAB [Suspect]
     Active Substance: MOGAMULIZUMAB
     Dosage: 100 MG (1MG/KG CYCLE 5 DAY 15)
     Route: 065
     Dates: start: 20240201
  13. MOGAMULIZUMAB [Suspect]
     Active Substance: MOGAMULIZUMAB
     Dosage: 100 MG (1MG/KG CYCLE 6 DAY 1)
     Route: 065
     Dates: start: 20240215
  14. MOGAMULIZUMAB [Suspect]
     Active Substance: MOGAMULIZUMAB
     Dosage: 100 MG (1MG/KG CYCLE 6 DAY 15)
     Route: 065
     Dates: start: 20240229
  15. MOGAMULIZUMAB [Suspect]
     Active Substance: MOGAMULIZUMAB
     Dosage: 100 MG (1MG/KG CYCLE 7 DAY 1)
     Route: 065
  16. ASPIRIN [Concomitant]
     Active Substance: ASPIRIN
     Indication: Product used for unknown indication
     Dosage: 100 MG, QD
     Route: 065
  17. BISOPROLOL [Concomitant]
     Active Substance: BISOPROLOL\BISOPROLOL FUMARATE
     Indication: Product used for unknown indication
     Dosage: 2.5 MG, QD
     Route: 065
  18. LEVOTHYROXINE SODIUM [Concomitant]
     Active Substance: LEVOTHYROXINE SODIUM
     Indication: Product used for unknown indication
     Dosage: 100 UG, QD
     Route: 065
  19. ATORVASTATIN [Concomitant]
     Active Substance: ATORVASTATIN
     Indication: Product used for unknown indication
     Dosage: 60 MG, QD
     Route: 065
  20. FENOFIBRATE [Concomitant]
     Active Substance: FENOFIBRATE
     Indication: Product used for unknown indication
     Dosage: 160 MG, QD
     Route: 065
  21. DESLORATADINE [Concomitant]
     Active Substance: DESLORATADINE
     Indication: Cutaneous T-cell lymphoma
     Dosage: 5 MG, BID (5 MG, 2-0-2)
     Route: 065
  22. VILANTEROL TRIFENATATE [Concomitant]
     Active Substance: VILANTEROL TRIFENATATE
     Indication: Product used for unknown indication
     Dosage: 39.82 UG, QD
     Route: 065
  23. UMECLIDINIUM BROMIDE [Concomitant]
     Active Substance: UMECLIDINIUM BROMIDE
     Indication: Product used for unknown indication
     Dosage: 74.14 UG, QD
     Route: 065
  24. PREGABALIN [Concomitant]
     Active Substance: PREGABALIN
     Indication: Product used for unknown indication
     Dosage: 50 MG, QD
     Route: 065
  25. CHOLECALCIFEROL [Concomitant]
     Active Substance: CHOLECALCIFEROL
     Indication: Product used for unknown indication
     Dosage: 1000 IE, QD
     Route: 065
  26. CYANOCOBALAMIN [Concomitant]
     Active Substance: CYANOCOBALAMIN
     Indication: Prophylaxis
     Dosage: 450 UG, QD
     Route: 065
  27. ACETAMINOPHEN [Concomitant]
     Active Substance: ACETAMINOPHEN
     Indication: Product used for unknown indication
     Dosage: 1000 MG (PRIOR TO EVERY MOGAMULIZUMAB ADMINISTRATION)
     Route: 065
     Dates: start: 20230926
  28. DIMETHINDENE MALEATE [Concomitant]
     Active Substance: DIMETHINDENE MALEATE
     Indication: Product used for unknown indication
     Dosage: 4 MG, OTHER (PRIOR TO EVERY MOGAMULIZUMAB ADMINISTRATION)
     Route: 065
     Dates: start: 20230926

REACTIONS (1)
  - Thyroiditis subacute [Recovered/Resolved]

NARRATIVE: CASE EVENT DATE: 20240306
